FAERS Safety Report 24024305 (Version 2)
Quarter: 2024Q3

REPORT INFORMATION
  Report Type: Report from Study
  Country: IT (occurrence: IT)
  Receive Date: 20240627
  Receipt Date: 20240710
  Transmission Date: 20241016
  Serious: No
  Sender: ROCHE
  Company Number: IT-ROCHE-3455134

PATIENT
  Age: 52 Year
  Sex: Female
  Weight: 66.5 kg

DRUGS (2)
  1. ALECTINIB [Suspect]
     Active Substance: ALECTINIB
     Indication: Non-small cell lung cancer metastatic
     Route: 048
     Dates: start: 20181231
  2. ALECTINIB [Suspect]
     Active Substance: ALECTINIB
     Route: 048
     Dates: start: 20230103

REACTIONS (1)
  - Fatigue [Recovered/Resolved]

NARRATIVE: CASE EVENT DATE: 20231025
